FAERS Safety Report 5181170-7 (Version None)
Quarter: 2006Q4

REPORT INFORMATION
  Report Type: 
  Country: None (occurrence: None)
  Receive Date: 20061220
  Receipt Date: 20061211
  Transmission Date: 20070319
  Serious: Yes (Other)
  Sender: FDA-Public Use
  Company Number: US-JNJFOC-20061203141

PATIENT
  Sex: Male
  Weight: 120.2 kg

DRUGS (12)
  1. FENTANYL TRANSDERMAL SYSTEM [Suspect]
     Indication: PAIN
     Route: 062
  2. KIONEX [Concomitant]
     Indication: BLOOD POTASSIUM
     Route: 048
  3. ACTOS [Concomitant]
     Indication: DIABETES MELLITUS
     Route: 048
  4. GLIMEPIRIDE [Concomitant]
     Indication: DIABETES MELLITUS
     Route: 048
  5. LANTUS [Concomitant]
     Indication: DIABETES MELLITUS
     Route: 058
  6. ATENOLOL [Concomitant]
     Indication: HYPERTENSION
     Route: 048
  7. TRICOR [Concomitant]
     Route: 048
  8. LIPITOR [Concomitant]
     Route: 048
  9. PLAVIX [Concomitant]
     Route: 048
  10. NEURONTIN [Concomitant]
     Indication: PAIN IN EXTREMITY
     Route: 048
  11. ARANESP [Concomitant]
     Route: 050
  12. BUMETANIDE [Concomitant]
     Indication: FLUID RETENTION
     Route: 048

REACTIONS (1)
  - BLOOD GLUCOSE INCREASED [None]
